FAERS Safety Report 7335491-X (Version None)
Quarter: 2011Q1

REPORT INFORMATION
  Report Type: 
  Country: None (occurrence: None)
  Receive Date: 20110307
  Receipt Date: 20110228
  Transmission Date: 20110831
  Serious: Yes (Hospitalization)
  Sender: FDA-Public Use
  Company Number: NL-MEDIMMUNE-MEDI-0012714

PATIENT
  Sex: Male

DRUGS (3)
  1. BECLOMETASONE DIPROPIONATE [Concomitant]
  2. SYNAGIS [Suspect]
     Route: 030
     Dates: start: 20101010, end: 20110131
  3. SYNAGIS [Suspect]
     Route: 030
     Dates: start: 20110228, end: 20110228

REACTIONS (6)
  - LARYNGITIS [None]
  - ERYTHEMA [None]
  - PYREXIA [None]
  - HYPOPHAGIA [None]
  - FATIGUE [None]
  - LOWER RESPIRATORY TRACT INFECTION VIRAL [None]
